FAERS Safety Report 13693317 (Version 2)
Quarter: 2017Q3

REPORT INFORMATION
  Report Type: Spontaneous
  Country: JP (occurrence: JP)
  Receive Date: 20170627
  Receipt Date: 20170707
  Transmission Date: 20171127
  Serious: Yes (Hospitalization, Other)
  Sender: FDA-Public Use
  Company Number: JP-BAYER-2017-109967

PATIENT
  Age: 73 Year
  Sex: Male

DRUGS (3)
  1. BAYASPIRIN 100 MG [Suspect]
     Active Substance: ASPIRIN
     Dosage: UNK
     Route: 048
     Dates: start: 20151020, end: 20160115
  2. XARELTO [Suspect]
     Active Substance: RIVAROXABAN
     Indication: ATRIAL FIBRILLATION
     Dosage: 10 MG, QD
     Route: 048
     Dates: start: 20160209
  3. XARELTO [Suspect]
     Active Substance: RIVAROXABAN
     Indication: CEREBROVASCULAR ACCIDENT PROPHYLAXIS

REACTIONS (5)
  - Hypoaesthesia [Recovered/Resolved]
  - Cerebral infarction [Recovered/Resolved]
  - Quadriplegia [Recovered/Resolved]
  - Atrial fibrillation [None]
  - Cerebral infarction [Recovered/Resolved]

NARRATIVE: CASE EVENT DATE: 2015
